FAERS Safety Report 25288284 (Version 1)
Quarter: 2025Q2

REPORT INFORMATION
  Report Type: Spontaneous
  Country: AU (occurrence: None)
  Receive Date: 20250508
  Receipt Date: 20250508
  Transmission Date: 20250717
  Serious: No
  Sender: FDA-CTU
  Company Number: None

PATIENT
  Age: 53 Year
  Sex: Female
  Weight: 74.5 kg

DRUGS (4)
  1. WEGOVY [Suspect]
     Active Substance: SEMAGLUTIDE
     Indication: Weight decreased
     Route: 050
     Dates: start: 20250331, end: 20250506
  2. Sifrol. [Concomitant]
  3. ESCITALOPRAM OXALATE [Concomitant]
     Active Substance: ESCITALOPRAM OXALATE
  4. CALCIUM\MAGNESIUM [Concomitant]
     Active Substance: CALCIUM\MAGNESIUM

REACTIONS (6)
  - Abdominal distension [None]
  - Abdominal pain upper [None]
  - Diarrhoea [None]
  - Eructation [None]
  - Gastrooesophageal reflux disease [None]
  - Breath odour [None]

NARRATIVE: CASE EVENT DATE: 20250505
